FAERS Safety Report 13792793 (Version 2)
Quarter: 2018Q3

REPORT INFORMATION
  Report Type: Spontaneous
  Country: IT (occurrence: IT)
  Receive Date: 20170726
  Receipt Date: 20180721
  Transmission Date: 20181010
  Serious: Yes (Other)
  Sender: FDA-Public Use
  Company Number: IT-AUROBINDO-AUR-APL-2017-37570

PATIENT
  Age: 81 Year
  Sex: Male

DRUGS (1)
  1. LEVETIRACETAM FILM?COATED TABLET [Suspect]
     Active Substance: LEVETIRACETAM
     Indication: EPILEPSY
     Dosage: 500 MG, DAILY
     Route: 048
     Dates: start: 20170101

REACTIONS (1)
  - Hypokalaemia [Recovered/Resolved]

NARRATIVE: CASE EVENT DATE: 20170120
